FAERS Safety Report 7820767-X (Version None)
Quarter: 2011Q4

REPORT INFORMATION
  Report Type: 
  Country: None (occurrence: None)
  Receive Date: 20111018
  Receipt Date: 20111005
  Transmission Date: 20120403
  Serious: Yes (Hospitalization)
  Sender: FDA-Public Use
  Company Number: US-BAYER-2011-055318

PATIENT
  Age: 32 Year
  Sex: Female
  Weight: 52.154 kg

DRUGS (6)
  1. DROSPIRENONE AND ETHINYL ESTRADIOL [Suspect]
     Indication: PREMENSTRUAL SYNDROME
  2. IBUPROFEN [Concomitant]
     Dosage: 800 MG, UNK
     Route: 048
     Dates: start: 20090910
  3. DROSPIRENONE AND ETHINYL ESTRADIOL [Suspect]
     Indication: ACNE
  4. NITROFURANTOIN [Concomitant]
     Dosage: UNK
     Dates: start: 20090912
  5. DROSPIRENONE AND ETHINYL ESTRADIOL [Suspect]
     Indication: CONTRACEPTION
     Dosage: UNK
     Dates: start: 20070801, end: 20090801
  6. SULFAMETHOXAZOLE AND TRIMETHOPRIM [Concomitant]
     Dosage: UNK
     Route: 048
     Dates: start: 20090910

REACTIONS (4)
  - RENAL FAILURE ACUTE [None]
  - VOMITING [None]
  - RENAL PAIN [None]
  - PAIN [None]
